FAERS Safety Report 14990365 (Version 1)
Quarter: 2018Q2

REPORT INFORMATION
  Report Type: Spontaneous
  Country: US (occurrence: US)
  Receive Date: 20180608
  Receipt Date: 20180608
  Transmission Date: 20180711
  Serious: No
  Sender: FDA-Public Use
  Company Number: US-ROCHE-1939056

PATIENT
  Age: 47 Year
  Sex: Male

DRUGS (1)
  1. ACTEMRA [Suspect]
     Active Substance: TOCILIZUMAB
     Indication: PRODUCT USED FOR UNKNOWN INDICATION
     Dosage: INJECT 162MG SUBQ EVERY WEEK?STRENGTH: 162MG/0.9ML
     Route: 058

REACTIONS (3)
  - Intercepted medication error [Unknown]
  - No adverse event [Unknown]
  - Product storage error [Unknown]
